FAERS Safety Report 7657247-0 (Version None)
Quarter: 2011Q3

REPORT INFORMATION
  Report Type: 
  Country: None (occurrence: None)
  Receive Date: 20110804
  Receipt Date: 20110721
  Transmission Date: 20111222
  Serious: Yes (Hospitalization, Other)
  Sender: FDA-Public Use
  Company Number: PHHY2011AR65966

PATIENT
  Sex: Female

DRUGS (1)
  1. DIOVAN [Suspect]
     Indication: BLOOD PRESSURE
     Dosage: 80 MG DAILY, UNK

REACTIONS (5)
  - COLITIS [None]
  - SWELLING [None]
  - INJURY [None]
  - HAEMATOMA [None]
  - INFECTION [None]
